FAERS Safety Report 12382834 (Version 1)
Quarter: 2016Q2

REPORT INFORMATION
  Report Type: Spontaneous
  Country: RO (occurrence: RO)
  Receive Date: 20160518
  Receipt Date: 20160518
  Transmission Date: 20160815
  Serious: Yes (Other)
  Sender: FDA-Public Use
  Company Number: RO-APOTEX-2016AP008502

PATIENT
  Age: 68 Year
  Sex: Female

DRUGS (4)
  1. PAXIL [Suspect]
     Active Substance: PAROXETINE HYDROCHLORIDE
     Indication: DEPRESSION
     Dosage: 20 MG, QD
     Route: 065
     Dates: start: 1996, end: 20151108
  2. PAXIL [Suspect]
     Active Substance: PAROXETINE HYDROCHLORIDE
     Indication: DEPRESSION
     Dosage: 14 MG, QD
     Route: 065
     Dates: start: 20160221, end: 20160429
  3. PAXIL [Suspect]
     Active Substance: PAROXETINE HYDROCHLORIDE
     Dosage: 9 MG, UNK
     Route: 065
  4. XANAX [Concomitant]
     Active Substance: ALPRAZOLAM
     Indication: SLEEP DISORDER
     Dosage: UNK
     Route: 065

REACTIONS (16)
  - Drug ineffective [Unknown]
  - Anxiety [Unknown]
  - Weight decreased [Unknown]
  - Hyperhidrosis [Unknown]
  - Impaired driving ability [Unknown]
  - Feeling abnormal [Unknown]
  - Head banging [Unknown]
  - Adverse event [Unknown]
  - Withdrawal syndrome [Not Recovered/Not Resolved]
  - Apathy [Unknown]
  - Suicide attempt [Unknown]
  - Activities of daily living impaired [Unknown]
  - Decreased appetite [Unknown]
  - Insomnia [Unknown]
  - Fear [Unknown]
  - Restlessness [Unknown]

NARRATIVE: CASE EVENT DATE: 201602
